FAERS Safety Report 10048762 (Version 1)
Quarter: 2014Q1

REPORT INFORMATION
  Report Type: Spontaneous
  Country: IR (occurrence: IR)
  Receive Date: 20140331
  Receipt Date: 20140331
  Transmission Date: 20141002
  Serious: Yes (Other)
  Sender: FDA-Public Use
  Company Number: IR-ACTAVIS-2014-05762

PATIENT
  Age: 20 Year
  Sex: Male

DRUGS (2)
  1. TRAMADOL (UNKNOWN) [Suspect]
     Indication: SUICIDE ATTEMPT
     Dosage: 3 G, TOTAL
     Route: 048
  2. TRAMADOL (UNKNOWN) [Suspect]
     Indication: INTENTIONAL OVERDOSE

REACTIONS (4)
  - Loss of consciousness [Unknown]
  - Grand mal convulsion [Unknown]
  - Suicide attempt [Unknown]
  - Intentional overdose [Unknown]
